FAERS Safety Report 20222009 (Version 1)
Quarter: 2021Q4

REPORT INFORMATION
  Report Type: Spontaneous
  Country: IE (occurrence: None)
  Receive Date: 20211222
  Receipt Date: 20211222
  Transmission Date: 20220303
  Serious: No
  Sender: FDA-Public Use
  Company Number: None

PATIENT
  Age: 38 Year
  Weight: 51.3 kg

DRUGS (4)
  1. BOTULINUM TOXIN TYPE A [Suspect]
     Active Substance: BOTULINUM TOXIN TYPE A
     Indication: Eyelid ptosis
     Dosage: OTHER FREQUENCY : 1XEVERY 3-4 MONTHS;?OTHER ROUTE : INJECTED INTO THE BROW MUSCLES;?
     Route: 050
     Dates: start: 20211218
  2. Vegan omegas, [Concomitant]
  3. VEGAN PROTEIN [Concomitant]
  4. VITAMIN D3 [Concomitant]
     Active Substance: CHOLECALCIFEROL

REACTIONS (6)
  - Chills [None]
  - Nausea [None]
  - Dizziness [None]
  - Palpitations [None]
  - Fatigue [None]
  - Pain [None]

NARRATIVE: CASE EVENT DATE: 20211218
